FAERS Safety Report 9310757 (Version 4)
Quarter: 2013Q3

REPORT INFORMATION
  Report Type: Spontaneous
  Country: BG (occurrence: BG)
  Receive Date: 20130528
  Receipt Date: 20130925
  Transmission Date: 20140515
  Serious: Yes (Other)
  Sender: FDA-Public Use
  Company Number: BG-AMGEN-BGRSP2013037155

PATIENT
  Sex: Female

DRUGS (7)
  1. PROLIA [Suspect]
     Indication: OSTEOPOROSIS POSTMENOPAUSAL
     Dosage: UNK
     Route: 065
     Dates: start: 20120925
  2. SERMION                            /00396401/ [Concomitant]
  3. ALFA-D3 [Concomitant]
     Dosage: 1 MG, QOD
     Dates: start: 20120820
  4. SOLU MEDROL [Concomitant]
     Dosage: 20 MG, UNK
     Dates: start: 20120820
  5. B COMPLEX                          /00212701/ [Concomitant]
  6. NIVALIN [Concomitant]
  7. LUCETAM [Concomitant]

REACTIONS (6)
  - Osteonecrosis of jaw [Not Recovered/Not Resolved]
  - Gingival pain [Not Recovered/Not Resolved]
  - Gingival disorder [Not Recovered/Not Resolved]
  - Tooth disorder [Unknown]
  - Fistula [Unknown]
  - Skin infection [Unknown]
